FAERS Safety Report 9397496 (Version 2)
Quarter: 2013Q3

REPORT INFORMATION
  Report Type: Spontaneous
  Country: US (occurrence: US)
  Receive Date: 20130712
  Receipt Date: 20130731
  Transmission Date: 20140515
  Serious: Yes (Hospitalization)
  Sender: FDA-Public Use
  Company Number: US-SANOFI-AVENTIS-2013SA070066

PATIENT
  Age: 63 Year
  Sex: Female

DRUGS (1)
  1. LOVENOX [Suspect]
     Indication: PRODUCT USED FOR UNKNOWN INDICATION

REACTIONS (3)
  - Catheterisation cardiac [Recovered/Resolved]
  - Haemoglobin decreased [Recovered/Resolved]
  - Abdominal wall haematoma [Recovered/Resolved]
